FAERS Safety Report 10214010 (Version 1)
Quarter: 2014Q2

REPORT INFORMATION
  Report Type: Spontaneous
  Country: CN (occurrence: CN)
  Receive Date: 20140603
  Receipt Date: 20140603
  Transmission Date: 20141212
  Serious: Yes (Other)
  Sender: FDA-Public Use
  Company Number: CN-ASTRAZENECA-2014SE36999

PATIENT
  Sex: Female
  Weight: 58 kg

DRUGS (2)
  1. ESOMEPRAZOLE SODIUM [Suspect]
     Indication: STRESS ULCER
     Route: 041
     Dates: start: 20130321, end: 20130325
  2. THYMOPENTIN [Suspect]
     Indication: IMMUNE SYSTEM DISORDER
     Route: 041
     Dates: start: 20130309, end: 20130325

REACTIONS (2)
  - Blood pressure decreased [Recovering/Resolving]
  - Hypersensitivity [Recovering/Resolving]
